FAERS Safety Report 20650029 (Version 1)
Quarter: 2022Q1

REPORT INFORMATION
  Report Type: Spontaneous
  Country: US (occurrence: US)
  Receive Date: 20220329
  Receipt Date: 20220329
  Transmission Date: 20220423
  Serious: No
  Sender: FDA-Public Use
  Company Number: US-ALKERMES INC.-ALK-2022-001411

PATIENT
  Sex: Female

DRUGS (3)
  1. VIVITROL [Suspect]
     Active Substance: NALTREXONE
     Indication: Alcoholism
     Dosage: 380 MILLIGRAM, QMO
     Route: 030
  2. PRAZOSIN HYDROCHLORIDE [Concomitant]
     Active Substance: PRAZOSIN HYDROCHLORIDE
     Indication: Product used for unknown indication
     Dosage: 1 MILLIGRAM
     Route: 065
  3. SERTRALINE [Concomitant]
     Active Substance: SERTRALINE HYDROCHLORIDE
     Indication: Product used for unknown indication
     Dosage: 25 MILLIGRAM, QMO
     Route: 030

REACTIONS (3)
  - Pain [Not Recovered/Not Resolved]
  - Injection site reaction [Not Recovered/Not Resolved]
  - Injection site pain [Not Recovered/Not Resolved]
